FAERS Safety Report 24658800 (Version 1)
Quarter: 2024Q4

REPORT INFORMATION
  Report Type: Spontaneous
  Country: FR (occurrence: FR)
  Receive Date: 20241125
  Receipt Date: 20241125
  Transmission Date: 20250114
  Serious: Yes (Life-Threatening, Other)
  Sender: MYLAN
  Company Number: None

PATIENT
  Age: 28 Year
  Sex: Male

DRUGS (4)
  1. DEXAMETHASONE [Suspect]
     Active Substance: DEXAMETHASONE
     Indication: Clavicle fracture
     Dosage: UNK
     Route: 042
     Dates: start: 20240430
  2. DIPRIVAN [Suspect]
     Active Substance: PROPOFOL
     Indication: Clavicle fracture
     Dosage: NR
     Route: 042
     Dates: start: 20240430
  3. KETAMINE [Suspect]
     Active Substance: KETAMINE
     Indication: Clavicle fracture
     Dosage: UNK
     Route: 042
     Dates: start: 20240430
  4. TRACRIUM [Suspect]
     Active Substance: ATRACURIUM BESYLATE
     Indication: Clavicle fracture
     Dosage: NR
     Route: 042
     Dates: start: 20240430

REACTIONS (6)
  - Anaphylactic reaction [Unknown]
  - Off label use [Unknown]
  - Tachycardia [Unknown]
  - Rash maculo-papular [Unknown]
  - Blood pressure decreased [Unknown]
  - Erythema [Unknown]

NARRATIVE: CASE EVENT DATE: 20240430
